FAERS Safety Report 4608537-7 (Version None)
Quarter: 2005Q1

REPORT INFORMATION
  Report Type: 
  Country: None (occurrence: None)
  Receive Date: 20050311
  Receipt Date: 20050224
  Transmission Date: 20050727
  Serious: Yes (Other)
  Sender: FDA-Public Use
  Company Number: CAN-2005-0000254

PATIENT
  Sex: Female

DRUGS (2)
  1. MORPHINE SULFATE [Suspect]
     Dosage: SEE TEXT, ORAL
     Route: 048
  2. COCAINE (COCAINE) [Suspect]
     Dosage: SEE TEXT

REACTIONS (5)
  - DRUG DEPENDENCE [None]
  - DRUG WITHDRAWAL SYNDROME [None]
  - MURDER [None]
  - POLYSUBSTANCE ABUSE [None]
  - TREATMENT NONCOMPLIANCE [None]
